FAERS Safety Report 8059955-9 (Version None)
Quarter: 2012Q1

REPORT INFORMATION
  Report Type: 
  Country: None (occurrence: None)
  Receive Date: 20120120
  Receipt Date: 20120112
  Transmission Date: 20120608
  Serious: Yes (Hospitalization, Other)
  Sender: FDA-Public Use
  Company Number: PHHY2011US38127

PATIENT
  Sex: Male

DRUGS (15)
  1. DIASTAT [Concomitant]
  2. ASENAPINE [Concomitant]
  3. CEFDINIR [Concomitant]
  4. AFINITOR [Suspect]
     Indication: TUBEROUS SCLEROSIS
     Dosage: 10 MG, DAILY
     Route: 048
     Dates: start: 20110330
  5. TRILEPTAL [Concomitant]
  6. LITHIUM [Concomitant]
  7. CLINDAMYCIN [Concomitant]
  8. AFINITOR [Suspect]
     Dosage: 12.5 MG, DAILY
     Route: 048
  9. AFINITOR [Suspect]
     Dosage: 20 MG, ONCE DAILY
     Route: 048
  10. MIDAZOLAM [Concomitant]
  11. SABRIL [Concomitant]
  12. MELATONIN [Concomitant]
  13. VITAMIN D [Concomitant]
  14. AFINITOR [Suspect]
     Dosage: 5 MG, QD
     Dates: start: 20110407
  15. AFINITOR [Suspect]
     Dosage: 20 MG, ONCE DAILY
     Route: 048
     Dates: start: 20110330, end: 20111030

REACTIONS (10)
  - PNEUMONIA [None]
  - PULMONARY MASS [None]
  - CONVULSION [None]
  - DECREASED APPETITE [None]
  - DRUG LEVEL BELOW THERAPEUTIC [None]
  - WHITE BLOOD CELL COUNT INCREASED [None]
  - PYREXIA [None]
  - EMOTIONAL DISORDER [None]
  - COUGH [None]
  - NASOPHARYNGITIS [None]
